FAERS Safety Report 21040039 (Version 2)
Quarter: 2022Q4

REPORT INFORMATION
  Report Type: Spontaneous
  Country: US (occurrence: US)
  Receive Date: 20220704
  Receipt Date: 20221202
  Transmission Date: 20230113
  Serious: No
  Sender: FDA-Public Use
  Company Number: US-BIOGEN-2022BI01137042

PATIENT
  Sex: Female

DRUGS (10)
  1. TYSABRI [Suspect]
     Active Substance: NATALIZUMAB
     Indication: Multiple sclerosis
     Dosage: INFUSE 300 MG INTRAVENOUSLY EVERY 4 WEEKS OVER ONE HOUR AT INFUSION CLINIC
     Route: 050
  2. FOLIC ACID [Concomitant]
     Active Substance: FOLIC ACID
     Route: 050
  3. ROSUVASTATIN CALCIUM [Concomitant]
     Active Substance: ROSUVASTATIN CALCIUM
     Route: 050
  4. FLEXERIL [Concomitant]
     Active Substance: CYCLOBENZAPRINE HYDROCHLORIDE
     Route: 050
  5. ACETAMINOPHEN [Concomitant]
     Active Substance: ACETAMINOPHEN
     Route: 050
  6. VITAMIN D3 [Concomitant]
     Active Substance: CHOLECALCIFEROL
     Route: 050
  7. MELATONIN [Concomitant]
     Active Substance: MELATONIN
     Route: 050
  8. NIFEDIPINE [Concomitant]
     Active Substance: NIFEDIPINE
     Route: 050
  9. CYMBALTA [Concomitant]
     Active Substance: DULOXETINE HYDROCHLORIDE
     Route: 050
  10. BIOTIN [Concomitant]
     Active Substance: BIOTIN
     Route: 050

REACTIONS (4)
  - Infusion site erythema [Unknown]
  - Infusion site pruritus [Unknown]
  - Protein urine present [Unknown]
  - Pollakiuria [Unknown]
